FAERS Safety Report 6570799-7 (Version None)
Quarter: 2010Q1

REPORT INFORMATION
  Report Type: 
  Country: None (occurrence: None)
  Receive Date: 20100204
  Receipt Date: 20100128
  Transmission Date: 20100710
  Serious: Yes (Hospitalization)
  Sender: FDA-Public Use
  Company Number: DE-JNJFOC-20090403781

PATIENT
  Age: 38 Year
  Sex: Female
  Weight: 51 kg

DRUGS (1)
  1. CILEST [Suspect]
     Indication: CONTRACEPTION
     Dosage: CYCLE OVER 21 DAYS, AFTERWARDS 7 DAYS BREAK
     Route: 048

REACTIONS (2)
  - APPENDICITIS [None]
  - HYPERTENSION [None]
